FAERS Safety Report 6681532-2 (Version None)
Quarter: 2010Q2

REPORT INFORMATION
  Report Type: 
  Country: None (occurrence: None)
  Receive Date: 20100414
  Receipt Date: 20100402
  Transmission Date: 20101027
  Serious: Yes (Other)
  Sender: FDA-Public Use
  Company Number: PHHY2009JP21508

PATIENT
  Sex: Female

DRUGS (17)
  1. TASIGNA [Suspect]
     Indication: CHRONIC MYELOID LEUKAEMIA
     Dosage: 800 MG DAILY
     Route: 048
     Dates: start: 20090325, end: 20090513
  2. TASIGNA [Suspect]
     Dosage: 400 MG DAILY
     Route: 048
     Dates: start: 20090610, end: 20090930
  3. TASIGNA [Suspect]
     Dosage: 600MG DAILY
     Route: 048
     Dates: start: 20091001, end: 20100310
  4. TASIGNA [Suspect]
     Dosage: 800MG DAILY
     Route: 048
     Dates: start: 20100311
  5. GLEEVEC [Concomitant]
     Indication: CHRONIC MYELOID LEUKAEMIA
     Dosage: 800 MG
     Route: 048
     Dates: start: 20070525, end: 20070625
  6. GLEEVEC [Concomitant]
     Dosage: 600 MG
     Route: 048
     Dates: start: 20070626, end: 20070724
  7. GLEEVEC [Concomitant]
     Dosage: 400 MG
     Route: 048
     Dates: start: 20070821, end: 20071001
  8. GLEEVEC [Concomitant]
     Dosage: 300 MG
     Route: 048
     Dates: start: 20071002, end: 20071212
  9. GLEEVEC [Concomitant]
     Dosage: 300 MG
     Route: 048
     Dates: start: 20080108, end: 20080811
  10. GLEEVEC [Concomitant]
     Dosage: 400 MG
     Route: 048
     Dates: start: 20080812, end: 20081214
  11. GLEEVEC [Concomitant]
     Dosage: 600 MG
     Route: 048
     Dates: start: 20081215, end: 20090324
  12. OMEPRAL [Concomitant]
     Indication: PROPHYLAXIS
     Dosage: 10 MG
     Route: 048
     Dates: start: 20081015, end: 20090513
  13. MIYA-BM [Concomitant]
     Dosage: 3 G
     Route: 048
     Dates: start: 20090408, end: 20090422
  14. CRAVIT [Concomitant]
     Dosage: 400 MG
     Route: 048
     Dates: start: 20090408, end: 20090415
  15. ALLEGRA [Concomitant]
     Dosage: 120MG
     Route: 048
     Dates: start: 20090916, end: 20091014
  16. ALESION [Concomitant]
     Dosage: 20MG
     Route: 048
     Dates: start: 20091015, end: 20091028
  17. ONON [Concomitant]
     Dosage: 450MG
     Route: 048
     Dates: start: 20091029, end: 20100113

REACTIONS (4)
  - ANAEMIA [None]
  - NEUTROPHIL COUNT DECREASED [None]
  - PLATELET COUNT DECREASED [None]
  - WHITE BLOOD CELL COUNT DECREASED [None]
